FAERS Safety Report 5840022-7 (Version None)
Quarter: 2008Q3

REPORT INFORMATION
  Report Type: 
  Country: None (occurrence: None)
  Receive Date: 20080808
  Receipt Date: 20080808
  Transmission Date: 20090109
  Serious: Yes (Other)
  Sender: FDA-Public Use
  Company Number: None

PATIENT
  Age: 9 Year
  Sex: Male
  Weight: 46.7205 kg

DRUGS (2)
  1. RISPERIDONE [Suspect]
     Indication: ATTENTION DEFICIT/HYPERACTIVITY DISORDER
     Dosage: 2MG BID ORAL
     Route: 048
     Dates: start: 20080717
  2. RISPERIDONE [Suspect]
     Indication: AUTISM
     Dosage: 2MG BID ORAL
     Route: 048
     Dates: start: 20080717

REACTIONS (4)
  - ABNORMAL BEHAVIOUR [None]
  - AGGRESSION [None]
  - PHARMACEUTICAL PRODUCT COMPLAINT [None]
  - SCREAMING [None]
